FAERS Safety Report 7285347 (Version 3)
Quarter: 2018Q4

REPORT INFORMATION
  Report Type: Spontaneous
  Country: JP (occurrence: JP)
  Receive Date: 20100219
  Receipt Date: 20181119
  Transmission Date: 20190205
  Serious: Yes (Death, Hospitalization, Other)
  Sender: FDA-Public Use
  Company Number: PHHY2010JP08677

PATIENT
  Age: 82 Year
  Sex: Male
  Weight: 50 kg

DRUGS (11)
  1. HARNAL [Concomitant]
     Active Substance: TAMSULOSIN HYDROCHLORIDE
     Indication: BENIGN PROSTATIC HYPERPLASIA
     Dosage: 0.2 MG, UNK
     Route: 048
     Dates: start: 20090626
  2. MUCOSTA [Concomitant]
     Active Substance: REBAMIPIDE
     Indication: GASTRODUODENAL ULCER
     Dosage: 300 MG, UNK
     Route: 048
     Dates: start: 20090626
  3. HYPEN [Concomitant]
     Indication: METASTASES TO BONE
     Dosage: 400 MG, UNK
     Route: 048
     Dates: start: 20090226
  4. ZOMETA [Suspect]
     Active Substance: ZOLEDRONIC ACID
     Indication: METASTASES TO BONE
     Dosage: 4 MG, UNK
     Route: 042
     Dates: start: 20090708, end: 20090708
  5. FERROMIA [Concomitant]
     Active Substance: SODIUM FERROUS CITRATE
     Indication: IRON DEFICIENCY ANAEMIA
     Dosage: 100 MG, UNK
     Route: 048
     Dates: start: 20090626
  6. ZOMETA [Suspect]
     Active Substance: ZOLEDRONIC ACID
     Indication: SMALL CELL LUNG CANCER
  7. OMEPRAL [Concomitant]
     Active Substance: OMEPRAZOLE
     Indication: GASTRODUODENAL ULCER
     Dosage: 20 MG, UNK
     Route: 065
     Dates: start: 20090626
  8. CALBLOCK [Concomitant]
     Active Substance: AZELNIDIPINE
     Indication: HYPERTENSION
     Dosage: 16 MG, UNK
     Route: 048
     Dates: start: 20090626
  9. LENDORMIN [Concomitant]
     Active Substance: BROTIZOLAM
     Indication: INSOMNIA
     Dosage: 0.25 MG, UNK
     Route: 048
     Dates: start: 20090626
  10. DECADRON [Concomitant]
     Active Substance: DEXAMETHASONE
     Indication: LUNG NEOPLASM MALIGNANT
     Dosage: 2 MG, UNK
     Route: 048
  11. DUROTEP [Concomitant]
     Active Substance: FENTANYL
     Indication: LUNG NEOPLASM MALIGNANT
     Dosage: 2.1 MG, UNK
     Route: 062
     Dates: start: 20090701

REACTIONS (14)
  - Blood urea increased [Unknown]
  - White blood cell count decreased [Unknown]
  - Purulent discharge [Unknown]
  - Feeling hot [Unknown]
  - Blood alkaline phosphatase increased [Unknown]
  - Aspartate aminotransferase increased [Unknown]
  - Malignant neoplasm progression [Fatal]
  - Platelet count decreased [Unknown]
  - Blood lactate dehydrogenase increased [Unknown]
  - Blood potassium increased [Unknown]
  - Blood creatinine increased [Unknown]
  - Osteomyelitis [Unknown]
  - Swelling [Unknown]
  - Blood pressure decreased [Unknown]

NARRATIVE: CASE EVENT DATE: 20090731
